FAERS Safety Report 4686271-5 (Version None)
Quarter: 2005Q2

REPORT INFORMATION
  Report Type: 
  Country: None (occurrence: None)
  Receive Date: 20050609
  Receipt Date: 20050602
  Transmission Date: 20051028
  Serious: Yes (Hospitalization)
  Sender: FDA-Public Use
  Company Number: CH-GLAXOSMITHKLINE-B0383776A

PATIENT
  Age: 49 Year
  Sex: Male

DRUGS (14)
  1. COMBIVIR [Suspect]
     Indication: DRUG USE FOR UNKNOWN INDICATION
     Dosage: 1U TWICE PER DAY
     Route: 048
     Dates: start: 20050101, end: 20050512
  2. SAQUINAVIR MESILATE [Suspect]
     Indication: DRUG USE FOR UNKNOWN INDICATION
     Dosage: 200MG TEN TIMES PER DAY
     Route: 048
     Dates: end: 20050512
  3. ESOMEPRAZOLE MAGNESIUM [Suspect]
     Indication: DRUG USE FOR UNKNOWN INDICATION
     Dosage: 40MG PER DAY
     Route: 048
     Dates: start: 20050421
  4. MIRTAZAPINE [Suspect]
     Indication: DRUG USE FOR UNKNOWN INDICATION
     Dosage: 30MG PER DAY
     Route: 048
     Dates: start: 20050301
  5. PREDNISOLONE [Concomitant]
     Dosage: 20MG THREE TIMES PER DAY
     Route: 048
     Dates: start: 20040101
  6. RITONAVIR [Concomitant]
     Indication: HIV INFECTION
     Dosage: 100MG TWICE PER DAY
     Route: 048
     Dates: start: 20050101, end: 20050512
  7. CLINDAMYCIN HYDROCHLORIDE [Concomitant]
     Dosage: 300MG THREE TIMES PER DAY
     Route: 048
     Dates: start: 20050324
  8. URSODEOXYCHOLIC ACID [Concomitant]
     Dosage: 450MG TWICE PER DAY
     Route: 048
     Dates: start: 20050324
  9. COLECALCIFEROL + CALCIUM CARBONATE [Concomitant]
     Dosage: 1U TWICE PER DAY
     Route: 048
     Dates: start: 20050421
  10. POTASSIUM CHLORIDE [Concomitant]
     Dosage: 1U TWICE PER DAY
     Route: 048
  11. MAGNESIUM ASPARTATE HYDROCHLORIDE [Concomitant]
     Dosage: 5MG THREE TIMES PER DAY
     Route: 048
  12. UNKNOWN DRUG [Concomitant]
     Dosage: 1U PER DAY
     Route: 048
     Dates: start: 20050502
  13. METHADONE HYDROCHLORIDE [Concomitant]
     Dosage: 3ML TWICE PER DAY
     Route: 048
  14. AGAROL [Concomitant]
     Dosage: 20ML THREE TIMES PER DAY
     Route: 048
     Dates: start: 20050422

REACTIONS (7)
  - APLASTIC ANAEMIA [None]
  - BLOOD BILIRUBIN INCREASED [None]
  - BLOOD LACTATE DEHYDROGENASE INCREASED [None]
  - BONE MARROW DEPRESSION [None]
  - HAEMOGLOBIN DECREASED [None]
  - PANCYTOPENIA [None]
  - THROMBOCYTOPENIA [None]
